FAERS Safety Report 12762943 (Version 2)
Quarter: 2016Q3

REPORT INFORMATION
  Report Type: Spontaneous
  Country: TR (occurrence: TR)
  Receive Date: 20160920
  Receipt Date: 20160928
  Transmission Date: 20161109
  Serious: Yes (Death, Life-Threatening, Other)
  Sender: FDA-Public Use
  Company Number: TR-BAYER-2016-175989

PATIENT
  Age: 74 Year
  Sex: Male

DRUGS (6)
  1. ACARBOSE. [Suspect]
     Active Substance: ACARBOSE
     Dosage: 50 MG, UNK
  2. AMPICILLIN AND SULBACTAM [Suspect]
     Active Substance: AMPICILLIN SODIUM\SULBACTAM SODIUM
     Indication: SEPSIS
     Dosage: 1 G, UNK
     Route: 042
  3. PANTOPRAZOLE [Concomitant]
     Active Substance: PANTOPRAZOLE SODIUM
     Dosage: 40 MG, UNK
  4. CIPROFLOXACIN. [Suspect]
     Active Substance: CIPROFLOXACIN
     Indication: SEPSIS
     Dosage: 200 MG, UNK
     Route: 042
  5. MAGNESIUM CITRATE. [Concomitant]
     Active Substance: MAGNESIUM CITRATE
     Dosage: UNK
  6. SPIRONOLACTONE AND HYDROCHLOROTHIAZIDE [Concomitant]
     Active Substance: HYDROCHLOROTHIAZIDE\SPIRONOLACTONE
     Dosage: 25 MG, UNK

REACTIONS (8)
  - Muscular weakness [None]
  - Chills [None]
  - Hypothermia [Fatal]
  - Cardio-respiratory arrest [Fatal]
  - Organ failure [Fatal]
  - Drug ineffective [None]
  - Asthenia [None]
  - Sepsis [None]
